FAERS Safety Report 5074289-2 (Version None)
Quarter: 2006Q3

REPORT INFORMATION
  Report Type: 
  Country: None (occurrence: None)
  Receive Date: 20060808
  Receipt Date: 20060223
  Transmission Date: 20061208
  Serious: No
  Sender: FDA-Public Use
  Company Number: US-AMGEN-US170094

PATIENT
  Sex: Male
  Weight: 66.6 kg

DRUGS (2)
  1. EPOGEN [Suspect]
     Indication: DIALYSIS
  2. ARANESP [Suspect]
     Indication: DIALYSIS
     Route: 042
     Dates: start: 20060208, end: 20060222

REACTIONS (2)
  - HYPERSENSITIVITY [None]
  - PRURITUS [None]
